FAERS Safety Report 10190541 (Version 1)
Quarter: 2014Q2

REPORT INFORMATION
  Report Type: Spontaneous
  Country: FR (occurrence: FR)
  Receive Date: 20140523
  Receipt Date: 20140523
  Transmission Date: 20141212
  Serious: Yes (Hospitalization)
  Sender: FDA-Public Use
  Company Number: FR-ROCHE-1401485

PATIENT
  Age: 5 Year
  Sex: Male
  Weight: 16.5 kg

DRUGS (6)
  1. CELLCEPT [Suspect]
     Indication: RENAL TRANSPLANT
     Dosage: 1G/5ML
     Route: 048
     Dates: start: 20131219
  2. CORTANCYL [Concomitant]
     Route: 065
  3. MODIGRAF [Concomitant]
     Route: 065
     Dates: start: 201402
  4. ADALATE [Concomitant]
     Route: 065
  5. BACTRIM FORTE [Concomitant]
     Route: 065
  6. NEORAL [Concomitant]
     Route: 065

REACTIONS (1)
  - Immunosuppressant drug level increased [Recovered/Resolved]
